FAERS Safety Report 5147720-1 (Version None)
Quarter: 2006Q4

REPORT INFORMATION
  Report Type: 
  Country: None (occurrence: None)
  Receive Date: 20061110
  Receipt Date: 20061101
  Transmission Date: 20070319
  Serious: Yes (Disabling)
  Sender: FDA-Public Use
  Company Number: 2006UW22126

PATIENT
  Age: 56 Year
  Sex: Male
  Weight: 85 kg

DRUGS (6)
  1. CRESTOR [Suspect]
     Indication: HYPERCHOLESTEROLAEMIA
     Route: 048
     Dates: start: 20061024
  2. RISPERIDONE [Concomitant]
     Indication: SCHIZOPHRENIA
     Route: 048
  3. FENOBARBITAL [Concomitant]
     Indication: SCHIZOPHRENIA
     Route: 048
  4. DIAZEPAM [Concomitant]
     Indication: SCHIZOPHRENIA
     Route: 048
  5. DEPAKENE [Concomitant]
     Indication: SCHIZOPHRENIA
     Route: 048
  6. FENERGAN [Concomitant]
     Indication: HYPERSENSITIVITY
     Route: 048

REACTIONS (2)
  - HYPERSOMNIA [None]
  - SOMNOLENCE [None]
